FAERS Safety Report 10983872 (Version 1)
Quarter: 2015Q2

REPORT INFORMATION
  Report Type: Spontaneous
  Country: US (occurrence: US)
  Receive Date: 20150403
  Receipt Date: 20150403
  Transmission Date: 20150821
  Serious: Yes (Hospitalization)
  Sender: FDA-Public Use
  Company Number: US-UNITED THERAPEUTICS-UNT-2015-003517

PATIENT
  Sex: Female

DRUGS (6)
  1. ORENITRAM [Suspect]
     Active Substance: TREPROSTINIL
     Dosage: 10 MG, TID
     Route: 048
  2. REMODULIN [Suspect]
     Active Substance: TREPROSTINIL
     Dosage: 0.048 ?G/KG, CONTINUING
     Route: 058
  3. ORENITRAM [Suspect]
     Active Substance: TREPROSTINIL
     Dosage: 5 MG, TID
     Route: 048
  4. REMODULIN [Suspect]
     Active Substance: TREPROSTINIL
     Indication: PRODUCT USED FOR UNKNOWN INDICATION
     Dosage: 0.069 ?G/KG, CONTINUING
     Route: 058
     Dates: end: 20150322
  5. ORENITRAM [Suspect]
     Active Substance: TREPROSTINIL
     Indication: PRODUCT USED FOR UNKNOWN INDICATION
     Dosage: 8 MG, TID
     Route: 048
     Dates: start: 20150323
  6. REMODULIN [Suspect]
     Active Substance: TREPROSTINIL
     Dosage: 0.026 ?G/KG, CONTINUING
     Route: 058

REACTIONS (3)
  - Diarrhoea [Unknown]
  - Dyspnoea [Unknown]
  - Nausea [Unknown]

NARRATIVE: CASE EVENT DATE: 20150322
